FAERS Safety Report 13676821 (Version 1)
Quarter: 2017Q2

REPORT INFORMATION
  Report Type: Spontaneous
  Country: US (occurrence: US)
  Receive Date: 20170621
  Receipt Date: 20170621
  Transmission Date: 20170830
  Serious: Yes (Life-Threatening, Hospitalization)
  Sender: FDA-Public Use
  Company Number: None

PATIENT
  Age: 33 Year
  Sex: Male

DRUGS (8)
  1. VINCRISTINE [Suspect]
     Active Substance: VINCRISTINE
     Indication: KAPOSI^S SARCOMA
     Route: 042
     Dates: start: 20170227, end: 20170504
  2. MULTIVITAMIN SUPPLEMENTS [Concomitant]
  3. PARACETAMOL [Concomitant]
     Active Substance: ACETAMINOPHEN
  4. BLEOMYCIN [Suspect]
     Active Substance: BLEOMYCIN SULFATE
     Indication: KAPOSI^S SARCOMA
     Route: 042
     Dates: start: 20170227, end: 20170504
  5. TRAMADOL. [Concomitant]
     Active Substance: TRAMADOL
  6. EFAVIRENZ/EMTRICITABINE/TENOFOVIR DP [Suspect]
     Active Substance: EFAVIRENZ\EMTRICITABINE\TENOFOVIR DISOPROXIL FUMARATE
     Indication: HIV INFECTION
     Dosage: DOSE - 600/200/300 MG ON BEDTIME
     Route: 048
     Dates: start: 20170227, end: 20170524
  7. SULFAMETHOXAZOLE/TRIMETHOPRIM [Concomitant]
     Active Substance: SULFAMETHOXAZOLE\TRIMETHOPRIM
  8. LAMIVUDINE/ABACAVIR/EFAVIRENZ [Concomitant]

REACTIONS (7)
  - Chills [None]
  - Feeling hot [None]
  - Acute kidney injury [None]
  - Pain in extremity [None]
  - Skin ulcer [None]
  - Haemoglobin decreased [None]
  - Platelet count decreased [None]

NARRATIVE: CASE EVENT DATE: 20170525
